FAERS Safety Report 16311842 (Version 1)
Quarter: 2019Q2

REPORT INFORMATION
  Report Type: Spontaneous
  Country: ES (occurrence: ES)
  Receive Date: 20190514
  Receipt Date: 20190514
  Transmission Date: 20190711
  Serious: Yes (Disabling)
  Sender: FDA-Public Use
  Company Number: ES-TEVA-2019-ES-1048255

PATIENT
  Age: 32 Year
  Sex: Female
  Weight: 57 kg

DRUGS (4)
  1. PANTOPRAZOL 20,MG [Concomitant]
     Indication: ABDOMINAL DISCOMFORT
     Dosage: 1 A DAY
     Route: 065
     Dates: start: 20190318, end: 20190407
  2. ESCITALOPRAM FLAS CINFA 10 MG TABLETS BUCODISPERSABLES EFG, 28 TABLETS [Suspect]
     Active Substance: ESCITALOPRAM OXALATE
     Indication: ANXIETY
     Dosage: 5 MG DAILY
     Route: 048
     Dates: start: 20190411
  3. ALPRAZOLAM O,25 [Suspect]
     Active Substance: ALPRAZOLAM
     Indication: ANXIETY
     Dosage: 0.25 IN THE MORNING, AND SOMETIMES IN THE EVENING
     Route: 065
     Dates: start: 20190409
  4. RHODIOLA [Concomitant]
     Active Substance: HERBALS
     Indication: ANXIETY
     Route: 065
     Dates: start: 20190304, end: 20190331

REACTIONS (5)
  - Somnolence [Not Recovered/Not Resolved]
  - Feeling abnormal [Not Recovered/Not Resolved]
  - Palpitations [Not Recovered/Not Resolved]
  - Derealisation [Not Recovered/Not Resolved]
  - Disturbance in attention [Not Recovered/Not Resolved]

NARRATIVE: CASE EVENT DATE: 20190411
